FAERS Safety Report 11155217 (Version 1)
Quarter: 2015Q2

REPORT INFORMATION
  Report Type: Spontaneous
  Country: JP (occurrence: None)
  Receive Date: 20150529
  Receipt Date: 20150529
  Transmission Date: 20150821
  Serious: Yes (Hospitalization)
  Sender: FDA-Public Use
  Company Number: SP09371

PATIENT
  Age: 73 Year
  Sex: Female

DRUGS (3)
  1. MOVIPREP [Suspect]
     Active Substance: ASCORBIC ACID\POLYETHYLENE GLYCOL 3350\POTASSIUM CHLORIDE\SODIUM ASCORBATE\SODIUM CHLORIDE\SODIUM SULFATE
     Indication: BOWEL PREPARATION
     Dosage: 1 LIT
     Route: 048
     Dates: start: 20150424, end: 20150424
  2. ERYTHROCIN [Concomitant]
     Active Substance: ERYTHROMYCIN LACTOBIONATE
  3. PREMINENT [Concomitant]
     Active Substance: HYDROCHLOROTHIAZIDE\LOSARTAN POTASSIUM

REACTIONS (6)
  - Chest discomfort [None]
  - Blood pressure decreased [None]
  - Angina pectoris [None]
  - Pain [None]
  - Electrocardiogram ST-T segment depression [None]
  - Palpitations [None]

NARRATIVE: CASE EVENT DATE: 20150424
